FAERS Safety Report 7394881-X (Version None)
Quarter: 2011Q2

REPORT INFORMATION
  Report Type: 
  Country: None (occurrence: None)
  Receive Date: 20110405
  Receipt Date: 20110328
  Transmission Date: 20111010
  Serious: Yes (Hospitalization)
  Sender: FDA-Public Use
  Company Number: A0921332A

PATIENT
  Age: 63 Year
  Sex: Male
  Weight: 126.8 kg

DRUGS (1)
  1. MELPHALAN [Suspect]
     Indication: MULTIPLE MYELOMA
     Route: 042
     Dates: start: 20101111, end: 20101214

REACTIONS (3)
  - CARDIAC VALVE DISEASE [None]
  - SYNCOPE [None]
  - ANAEMIA [None]
